FAERS Safety Report 4483384-8 (Version None)
Quarter: 2004Q4

REPORT INFORMATION
  Report Type: 
  Country: None (occurrence: None)
  Receive Date: 20041020
  Receipt Date: 20041007
  Transmission Date: 20050328
  Serious: Yes (Hospitalization)
  Sender: FDA-Public Use
  Company Number: 6010954

PATIENT
  Age: 73 Year
  Sex: Male

DRUGS (7)
  1. BISOPROLOL (CHF) (TABLETS) (BISOPROLOL) [Suspect]
     Indication: CARDIAC FAILURE CONGESTIVE
     Dosage: 10 MG ORAL
     Route: 048
     Dates: start: 20030924
  2. ENALAPRIL 10 MG TABLETS (ENALAPRIL) [Suspect]
     Indication: CARDIAC FAILURE CONGESTIVE
     Dosage: 20 MG ORAL
     Route: 048
     Dates: start: 20040318
  3. ANAGRELID (ANAGRELIDE) [Concomitant]
  4. LASIX [Concomitant]
  5. AQUAPHORIL (XIPAMIDE) [Concomitant]
  6. UROSIN (ALLOPURINOL) [Concomitant]
  7. SINTROM [Concomitant]

REACTIONS (10)
  - CLOSTRIDIUM COLITIS [None]
  - CONDITION AGGRAVATED [None]
  - DIZZINESS [None]
  - FALL [None]
  - FATIGUE [None]
  - HAEMORRHAGE [None]
  - RENAL FAILURE ACUTE [None]
  - RENAL FAILURE CHRONIC [None]
  - SKIN INJURY [None]
  - TREMOR [None]
